FAERS Safety Report 4692449-7 (Version None)
Quarter: 2005Q2

REPORT INFORMATION
  Report Type: 
  Country: None (occurrence: None)
  Receive Date: 20050613
  Receipt Date: 20050503
  Transmission Date: 20051028
  Serious: Yes (Death)
  Sender: FDA-Public Use
  Company Number: 2005-00979

PATIENT
  Age: 68 Year
  Sex: Male

DRUGS (1)
  1. VELCADE [Suspect]

REACTIONS (4)
  - ASCITES [None]
  - ILEUS [None]
  - OEDEMA PERIPHERAL [None]
  - RENAL FAILURE [None]
